FAERS Safety Report 13519241 (Version 1)
Quarter: 2017Q2

REPORT INFORMATION
  Report Type: Other
  Country: NO (occurrence: NO)
  Receive Date: 20170505
  Receipt Date: 20170505
  Transmission Date: 20170830
  Serious: Yes (Disabling)
  Sender: FDA-Public Use
  Company Number: NO-TAKEDA-2017TUS008721

PATIENT
  Age: 43 Year
  Sex: Female

DRUGS (4)
  1. ASACOL [Concomitant]
     Active Substance: MESALAMINE
     Dosage: UNK
  2. PREDNISOLON [Concomitant]
     Active Substance: PREDNISOLONE
     Dosage: UNK
  3. METEX (METHOTREXATE) [Concomitant]
     Active Substance: METHOTREXATE
     Dosage: UNK
  4. ENTYVIO [Suspect]
     Active Substance: VEDOLIZUMAB
     Indication: COLITIS ULCERATIVE
     Dosage: 300 MG, UNK
     Route: 042
     Dates: start: 20160912, end: 20161219

REACTIONS (3)
  - Listless [Unknown]
  - Thyroiditis [Not Recovered/Not Resolved]
  - Arthralgia [Unknown]

NARRATIVE: CASE EVENT DATE: 2016
